FAERS Safety Report 12869590 (Version 1)
Quarter: 2016Q4

REPORT INFORMATION
  Report Type: Spontaneous
  Country: US (occurrence: US)
  Receive Date: 20161020
  Receipt Date: 20161020
  Transmission Date: 20170207
  Serious: Yes (Hospitalization)
  Sender: FDA-Public Use
  Company Number: None

PATIENT
  Age: 28 Year
  Sex: Female
  Weight: 54 kg

DRUGS (2)
  1. NUVARING [Suspect]
     Active Substance: ETHINYL ESTRADIOL\ETONOGESTREL
     Indication: CONTRACEPTION
     Dosage: ?          QUANTITY:2 RING;OTHER FREQUENCY:ONE EVERY 4 WEEKS; VAGINAL?
     Route: 067
     Dates: start: 20160229, end: 20161019
  2. ORAL CONTRACEPTIVES WITH ESTROGEN [Concomitant]

REACTIONS (3)
  - Cholelithiasis [None]
  - Abdominal pain [None]
  - Pancreatitis acute [None]

NARRATIVE: CASE EVENT DATE: 20161015
